FAERS Safety Report 20746922 (Version 8)
Quarter: 2023Q2

REPORT INFORMATION
  Report Type: Report from Study
  Country: JP (occurrence: JP)
  Receive Date: 20220425
  Receipt Date: 20230419
  Transmission Date: 20230721
  Serious: Yes (Hospitalization)
  Sender: FDA-Public Use
  Company Number: JP-ELI_LILLY_AND_COMPANY-JP202202006854

PATIENT
  Age: 86 Year
  Sex: Male
  Weight: 57 kg

DRUGS (10)
  1. RETEVMO [Suspect]
     Active Substance: SELPERCATINIB
     Indication: Lung adenocarcinoma stage III
     Dosage: 160 MG, BID
     Route: 048
     Dates: start: 20220201, end: 20220215
  2. RETEVMO [Suspect]
     Active Substance: SELPERCATINIB
     Dosage: 80 MG, BID
     Route: 048
     Dates: start: 20220222, end: 20220224
  3. PREDNISOLONE [Concomitant]
     Active Substance: PREDNISOLONE
     Indication: Hypersensitivity
     Dosage: 25 MG
     Route: 048
     Dates: start: 20220224, end: 20220314
  4. PREDNISOLONE [Concomitant]
     Active Substance: PREDNISOLONE
     Dosage: 20 MG
     Route: 048
     Dates: start: 20220315, end: 20220322
  5. PREDNISOLONE [Concomitant]
     Active Substance: PREDNISOLONE
     Dosage: 15 MG
     Route: 048
     Dates: start: 20220323, end: 20220327
  6. PREDNISOLONE [Concomitant]
     Active Substance: PREDNISOLONE
     Dosage: 10 MG
     Route: 048
     Dates: start: 20220401, end: 20220404
  7. PREDNISOLONE [Concomitant]
     Active Substance: PREDNISOLONE
     Dosage: 7.5 MG
     Route: 048
     Dates: start: 20220405, end: 20220412
  8. PREDNISOLONE [Concomitant]
     Active Substance: PREDNISOLONE
     Dosage: 5 MG
     Route: 048
     Dates: start: 20220413, end: 20220419
  9. PREDNISOLONE [Concomitant]
     Active Substance: PREDNISOLONE
     Dosage: 2.5 MG
     Route: 048
     Dates: start: 20220420, end: 20220426
  10. PREDNISOLONE SODIUM SUCCINATE [Concomitant]
     Active Substance: PREDNISOLONE SODIUM SUCCINATE
     Indication: Hypersensitivity
     Dosage: 20 MG
     Route: 042
     Dates: start: 20220328, end: 20220331

REACTIONS (2)
  - Pneumothorax [Recovered/Resolved]
  - Pneumothorax [Recovered/Resolved]

NARRATIVE: CASE EVENT DATE: 20220307
